FAERS Safety Report 9642751 (Version 1)
Quarter: 2013Q4

REPORT INFORMATION
  Report Type: Spontaneous
  Country: CY (occurrence: CY)
  Receive Date: 20131024
  Receipt Date: 20131024
  Transmission Date: 20140711
  Serious: Yes (Other)
  Sender: FDA-Public Use
  Company Number: CY-JNJFOC-20131011203

PATIENT
  Sex: Male

DRUGS (1)
  1. ZYTIGA [Suspect]
     Indication: PROSTATE CANCER METASTATIC
     Dosage: 4 TABLETS OF 250 MG
     Route: 048
     Dates: start: 201304, end: 201307

REACTIONS (2)
  - Large intestine polyp [Recovering/Resolving]
  - Rectal haemorrhage [Recovering/Resolving]
